FAERS Safety Report 15336294 (Version 4)
Quarter: 2019Q1

REPORT INFORMATION
  Report Type: Spontaneous
  Country: US (occurrence: US)
  Receive Date: 20180830
  Receipt Date: 20190221
  Transmission Date: 20190417
  Serious: Yes (Hospitalization)
  Sender: FDA-Public Use
  Company Number: US-ACTELION-A-NJ2018-177673

PATIENT
  Age: 76 Year
  Sex: Female

DRUGS (25)
  1. FERROUS SULFATE. [Concomitant]
     Active Substance: FERROUS SULFATE
  2. DOK [Concomitant]
     Active Substance: DOCUSATE SODIUM
  3. OPSUMIT [Suspect]
     Active Substance: MACITENTAN
     Indication: PULMONARY ARTERIAL HYPERTENSION
     Dosage: 10 MG, QD
     Route: 048
     Dates: start: 20180720
  4. PROAIR HFA [Concomitant]
     Active Substance: ALBUTEROL SULFATE
  5. ATENOLOL. [Concomitant]
     Active Substance: ATENOLOL
  6. AMLODIPINE [Concomitant]
     Active Substance: AMLODIPINE BESYLATE
  7. CARTIA XT [Concomitant]
     Active Substance: DILTIAZEM HYDROCHLORIDE
  8. SPIRONOLACTONE. [Concomitant]
     Active Substance: SPIRONOLACTONE
  9. FURSEMIDE [Concomitant]
     Active Substance: FUROSEMIDE
  10. SILDENAFIL. [Suspect]
     Active Substance: SILDENAFIL
     Indication: PULMONARY ARTERIAL HYPERTENSION
     Dosage: 20 MG, TID
     Route: 048
     Dates: start: 20180324
  11. LOSARTAN POTASSIUM. [Concomitant]
     Active Substance: LOSARTAN POTASSIUM
  12. ATORVASTATIN [Concomitant]
     Active Substance: ATORVASTATIN
  13. FLUTICASONE. [Concomitant]
     Active Substance: FLUTICASONE
  14. MECLIZINE [Concomitant]
     Active Substance: MECLIZINE HYDROCHLORIDE
  15. DILTIAZEM. [Concomitant]
     Active Substance: DILTIAZEM
  16. ONDANSETRON [Concomitant]
     Active Substance: ONDANSETRON
  17. METOPROL XL [Concomitant]
  18. POTASSIUM CHLORIDE. [Concomitant]
     Active Substance: POTASSIUM CHLORIDE
  19. ROPINIROLE. [Concomitant]
     Active Substance: ROPINIROLE
  20. TRAMADOL. [Concomitant]
     Active Substance: TRAMADOL
  21. CHLORTHALIDON [Concomitant]
  22. ELIQUIS [Concomitant]
     Active Substance: APIXABAN
  23. PANTOPRAZOLE [Concomitant]
     Active Substance: PANTOPRAZOLE
  24. NITROGLYCERIN. [Concomitant]
     Active Substance: NITROGLYCERIN
  25. WARFARIN [Concomitant]
     Active Substance: WARFARIN

REACTIONS (8)
  - Vomiting [Unknown]
  - Product dose omission [Unknown]
  - Dyspnoea [Unknown]
  - Dyspepsia [Unknown]
  - Nausea [Unknown]
  - Paranasal sinus hypersecretion [Unknown]
  - Hospitalisation [Unknown]
  - Product distribution issue [Unknown]

NARRATIVE: CASE EVENT DATE: 20180909
